FAERS Safety Report 9631238 (Version 1)
Quarter: 2013Q4

REPORT INFORMATION
  Report Type: Spontaneous
  Country: IL (occurrence: None)
  Receive Date: 20131015
  Receipt Date: 20131015
  Transmission Date: 20140711
  Serious: Yes (Hospitalization)
  Sender: FDA-Public Use
  Company Number: METF20130012

PATIENT
  Age: 78 Year
  Sex: Male
  Weight: 82 kg

DRUGS (8)
  1. METFORMIN HYDROCHLORIDE [Suspect]
     Indication: TYPE 2 DIABETES MELLITUS
     Dosage: 1 IN 1 D
     Route: 048
  2. PRAVASTATIN [Concomitant]
  3. AUGMENTIN [Concomitant]
  4. AMLODIPINE BESYLATE TABLETS 5 MG [Concomitant]
  5. HYDROCHLOROTHIAZIDE CAPSULES 12.5 MG [Concomitant]
  6. CANDESARTAN [Concomitant]
  7. ATENOLOL [Concomitant]
  8. ASPIRIN [Concomitant]

REACTIONS (8)
  - Mixed liver injury [None]
  - Jaundice [None]
  - Hepatotoxicity [None]
  - Blood bilirubin increased [None]
  - Alanine aminotransferase increased [None]
  - Aspartate aminotransferase increased [None]
  - Blood alkaline phosphatase increased [None]
  - Gamma-glutamyltransferase increased [None]
